FAERS Safety Report 5891984-3 (Version None)
Quarter: 2008Q3

REPORT INFORMATION
  Report Type: 
  Country: None (occurrence: None)
  Receive Date: 20080922
  Receipt Date: 20080915
  Transmission Date: 20090109
  Serious: Yes (Other)
  Sender: FDA-Public Use
  Company Number: US-PFIZER INC-2008077391

PATIENT
  Sex: Female

DRUGS (1)
  1. ESTRING [Suspect]

REACTIONS (3)
  - DIARRHOEA [None]
  - RASH [None]
  - TOXIC SHOCK SYNDROME [None]
